FAERS Safety Report 10413007 (Version 3)
Quarter: 2014Q3

REPORT INFORMATION
  Report Type: Spontaneous
  Country: US (occurrence: US)
  Receive Date: 20140827
  Receipt Date: 20140904
  Transmission Date: 20150326
  Serious: Yes (Hospitalization, Disabling, Other)
  Sender: FDA-Public Use
  Company Number: US-009507513-2010SP015815

PATIENT
  Sex: Female
  Weight: 70.31 kg

DRUGS (5)
  1. METOPROLOL [Concomitant]
     Active Substance: METOPROLOL
     Indication: PRODUCT USED FOR UNKNOWN INDICATION
     Dates: start: 2006
  2. NUVARING [Suspect]
     Active Substance: ETHINYL ESTRADIOL\ETONOGESTREL
     Indication: CONTRACEPTION
     Dosage: UNK
     Route: 067
     Dates: start: 20040129, end: 20060313
  3. SYNTHROID [Concomitant]
     Active Substance: LEVOTHYROXINE SODIUM
     Indication: HYPOTHYROIDISM
     Dates: start: 1995
  4. CLOPIDOGREL [Concomitant]
     Active Substance: CLOPIDOGREL BISULFATE
     Indication: PRODUCT USED FOR UNKNOWN INDICATION
     Dates: start: 2006
  5. FEXOFENADINE HYDROCHLORIDE. [Concomitant]
     Active Substance: FEXOFENADINE HYDROCHLORIDE

REACTIONS (16)
  - Hypoxic-ischaemic encephalopathy [Unknown]
  - Coma [Unknown]
  - Convulsion [Unknown]
  - Hypertension [Unknown]
  - Cardiac arrest [Unknown]
  - Respiratory failure [Recovering/Resolving]
  - Haemophilus test positive [Unknown]
  - Laceration [Unknown]
  - Urinary tract infection [Unknown]
  - Acute myocardial infarction [Unknown]
  - Syncope [Unknown]
  - Coronary artery occlusion [Unknown]
  - Pulmonary embolism [Unknown]
  - Polycythaemia [Unknown]
  - Amnesia [Not Recovered/Not Resolved]
  - Papilloma viral infection [Unknown]

NARRATIVE: CASE EVENT DATE: 20060131
